FAERS Safety Report 4372846-X (Version None)
Quarter: 2004Q2

REPORT INFORMATION
  Report Type: 
  Country: None (occurrence: None)
  Receive Date: 20040603
  Receipt Date: 20031111
  Transmission Date: 20050107
  Serious: Yes (Death)
  Sender: FDA-Public Use
  Company Number: F01200301259

PATIENT
  Age: 54 Year
  Sex: Male

DRUGS (6)
  1. OXALIPLATIN - SOLUTION - 85 MG/M2 [Suspect]
     Indication: GASTROINTESTINAL CANCER METASTATIC
     Dosage: 85 MG/M2 Q2W
     Route: 042
     Dates: start: 20030929, end: 20030929
  2. FLUOROURACIL [Suspect]
     Dosage: 500 MG/M2 IV BOLUS ON DAY 1, 8 AND 15, EVERY 4 WEEKS
     Route: 040
     Dates: start: 20030929, end: 20030929
  3. LEUCOVORIN CALCIUM [Suspect]
     Dosage: 20 MG/M2 IN WEEKS 1, 2 AND 3 EVERY 4 WEEKS
     Route: 042
     Dates: start: 20030929, end: 20030929
  4. TRAMADOL HCL [Concomitant]
  5. PLASIL (METOCLOPRAMIDE HCL) [Concomitant]
  6. RANITIDINE [Concomitant]

REACTIONS (5)
  - ANAEMIA [None]
  - GASTROINTESTINAL CANCER METASTATIC [None]
  - GASTROINTESTINAL HAEMORRHAGE [None]
  - MALIGNANT NEOPLASM PROGRESSION [None]
  - THROMBOCYTOPENIA [None]
